FAERS Safety Report 8193743-8 (Version None)
Quarter: 2012Q1

REPORT INFORMATION
  Report Type: 
  Country: None (occurrence: None)
  Receive Date: 20120308
  Receipt Date: 20120229
  Transmission Date: 20120608
  Serious: Yes (Other)
  Sender: FDA-Public Use
  Company Number: CA-JNJFOC-20110300332

PATIENT
  Sex: Male
  Weight: 71 kg

DRUGS (16)
  1. DIDROCAL [Concomitant]
     Route: 048
     Dates: start: 20010101
  2. RABEPRAZOLE SODIUM [Concomitant]
     Route: 048
     Dates: start: 20070517, end: 20091220
  3. FOLIC ACID [Concomitant]
     Route: 048
     Dates: start: 20060915
  4. FINASTERIDE [Concomitant]
     Route: 048
     Dates: start: 20090514
  5. METHOTREXATE [Concomitant]
     Route: 048
     Dates: start: 20080609
  6. CRESTOR [Concomitant]
     Indication: BLOOD CHOLESTEROL INCREASED
     Route: 048
     Dates: start: 20090720
  7. MELOXICAM [Concomitant]
     Route: 048
     Dates: start: 20090804, end: 20101221
  8. PREDNISONE TAB [Concomitant]
     Route: 048
     Dates: start: 20081216
  9. GOLIMUMAB [Suspect]
     Indication: RHEUMATOID ARTHRITIS
     Route: 058
     Dates: start: 20061005, end: 20101125
  10. SURFAK [Concomitant]
     Route: 048
     Dates: start: 20100126
  11. HYDROCHLOROTHIAZIDE [Concomitant]
     Route: 048
     Dates: start: 20100430
  12. EXTRA STRENGTH TYLENOL [Concomitant]
     Route: 048
     Dates: start: 20000101
  13. GOLIMUMAB [Suspect]
     Route: 058
     Dates: start: 20101125
  14. METHOTREXATE [Suspect]
     Indication: RHEUMATOID ARTHRITIS
     Route: 048
     Dates: start: 20060918, end: 20071001
  15. METAMUCIL-2 [Concomitant]
     Route: 048
     Dates: start: 20091221
  16. DOMPERIDONE [Concomitant]
     Route: 048
     Dates: start: 20091221, end: 20100301

REACTIONS (7)
  - LYMPHADENOPATHY [None]
  - NEUTROPENIA [None]
  - GASTRIC CANCER [None]
  - STOMATITIS [None]
  - HELICOBACTER GASTRITIS [None]
  - LUNG NEOPLASM [None]
  - ORAL CANDIDIASIS [None]
